FAERS Safety Report 25066672 (Version 1)
Quarter: 2025Q1

REPORT INFORMATION
  Report Type: Report from Study
  Country: US (occurrence: US)
  Receive Date: 20250312
  Receipt Date: 20250312
  Transmission Date: 20250408
  Serious: Yes (Death, Other)
  Sender: ACADIA PHARMACEUTICALS
  Company Number: US-ACADIA PHARMACEUTICALS INC.-ACA-2025-PIM-002486

PATIENT
  Age: 71 Year
  Sex: Male

DRUGS (17)
  1. NUPLAZID [Suspect]
     Active Substance: PIMAVANSERIN TARTRATE
     Indication: Parkinson^s disease
     Dosage: 34 MILLIGRAM, QD
     Route: 048
     Dates: start: 20230222, end: 20250302
  2. ASPIRIN [Concomitant]
     Active Substance: ASPIRIN
  3. ATORVASTATIN [Concomitant]
     Active Substance: ATORVASTATIN
  4. CETIRIZINE [Concomitant]
     Active Substance: CETIRIZINE HYDROCHLORIDE
  5. ENTACAPONE [Concomitant]
     Active Substance: ENTACAPONE
  6. FLUTICASONE [Concomitant]
     Active Substance: FLUTICASONE
  7. ESCITALOPRAM [Concomitant]
     Active Substance: ESCITALOPRAM OXALATE
  8. METFORMIN [Concomitant]
     Active Substance: METFORMIN HYDROCHLORIDE
  9. PRAMIPEXOLE [Concomitant]
     Active Substance: PRAMIPEXOLE
  10. PRAMIPEXOLE [Concomitant]
     Active Substance: PRAMIPEXOLE
  11. QUINAPRIL [Concomitant]
     Active Substance: QUINAPRIL
  12. RYTARY [Concomitant]
     Active Substance: CARBIDOPA\LEVODOPA
  13. TOUJEO [Concomitant]
     Active Substance: INSULIN GLARGINE
  14. TRIAMCINOLONE [Concomitant]
     Active Substance: TRIAMCINOLONE
  15. TRULICITY [Concomitant]
     Active Substance: DULAGLUTIDE
  16. CELECOXIB [Concomitant]
     Active Substance: CELECOXIB
  17. LATANOPROST [Concomitant]
     Active Substance: LATANOPROST

REACTIONS (1)
  - Death [Fatal]

NARRATIVE: CASE EVENT DATE: 20250302
